FAERS Safety Report 17676280 (Version 2)
Quarter: 2020Q2

REPORT INFORMATION
  Report Type: Spontaneous
  Country: US (occurrence: US)
  Receive Date: 20200416
  Receipt Date: 20200529
  Transmission Date: 20200714
  Serious: Yes (Other)
  Sender: FDA-Public Use
  Company Number: US-BAYER-2020-058453

PATIENT
  Sex: Male

DRUGS (3)
  1. AFRIN ORIGINAL [Suspect]
     Active Substance: OXYMETAZOLINE HYDROCHLORIDE
     Indication: HYPERSENSITIVITY
     Dosage: 1 SPRAY, SOMETIMES MORE THAN DIRECTED.
     Route: 055
     Dates: end: 20200408
  2. AFRIN ORIGINAL [Suspect]
     Active Substance: OXYMETAZOLINE HYDROCHLORIDE
     Indication: NASOPHARYNGITIS
  3. CETIRIZINE [Concomitant]
     Active Substance: CETIRIZINE HYDROCHLORIDE

REACTIONS (8)
  - Product use issue [Unknown]
  - Product expiration date issue [None]
  - Choking [Unknown]
  - Extra dose administered [Unknown]
  - Drug delivery system issue [None]
  - Wrong technique in product usage process [Unknown]
  - Incorrect dose administered [None]
  - Product lot number issue [None]
